FAERS Safety Report 17165263 (Version 1)
Quarter: 2019Q4

REPORT INFORMATION
  Report Type: Spontaneous
  Country: AT (occurrence: AT)
  Receive Date: 20191217
  Receipt Date: 20191217
  Transmission Date: 20200122
  Serious: Yes (Other)
  Sender: FDA-Public Use
  Company Number: AT-PFM-2019-15347

PATIENT

DRUGS (2)
  1. PROPRANOLOL [Suspect]
     Active Substance: PROPRANOLOL HYDROCHLORIDE
     Indication: OFF LABEL USE
  2. PROPRANOLOL [Suspect]
     Active Substance: PROPRANOLOL HYDROCHLORIDE
     Indication: HASHITOXICOSIS
     Route: 065

REACTIONS (8)
  - Tachycardia [Unknown]
  - Product use in unapproved indication [Unknown]
  - Blood thyroid stimulating hormone increased [Unknown]
  - Chest pain [Unknown]
  - Product use issue [Unknown]
  - Hypothyroidism [Unknown]
  - Dyspnoea [Unknown]
  - Off label use [Unknown]
